FAERS Safety Report 7906470-6 (Version None)
Quarter: 2011Q4

REPORT INFORMATION
  Report Type: 
  Country: None (occurrence: None)
  Receive Date: 20111110
  Receipt Date: 20111107
  Transmission Date: 20120403
  Serious: Yes (Other)
  Sender: FDA-Public Use
  Company Number: US-JNJFOC-20070105719

PATIENT
  Sex: Female
  Weight: 41.28 kg

DRUGS (5)
  1. CITALOPRAM HYDROBROMIDE [Concomitant]
  2. SEROQUEL [Suspect]
     Indication: BIPOLAR I DISORDER
     Dates: start: 20020401, end: 20061201
  3. SEROQUEL [Suspect]
     Indication: SLEEP DISORDER THERAPY
     Dates: start: 20020401, end: 20061201
  4. RISPERDAL [Suspect]
     Indication: SLEEP DISORDER THERAPY
     Dates: start: 19980101
  5. ZYPREXA [Suspect]
     Indication: ANXIETY
     Dates: start: 19970301, end: 20040201

REACTIONS (1)
  - TYPE 2 DIABETES MELLITUS [None]
